FAERS Safety Report 13879732 (Version 2)
Quarter: 2017Q3

REPORT INFORMATION
  Report Type: Report from Study
  Country: US (occurrence: US)
  Receive Date: 20170818
  Receipt Date: 20170901
  Transmission Date: 20171127
  Serious: Yes (Other)
  Sender: FDA-Public Use
  Company Number: US-PFIZER INC-2017355761

PATIENT
  Age: 78 Year
  Sex: Female

DRUGS (1)
  1. IBRANCE [Suspect]
     Active Substance: PALBOCICLIB
     Indication: BREAST CANCER METASTATIC
     Dosage: 125 MG, CYCLIC (DAILY/ 21 DAYS ON AND 7 DAYS OFF)
     Route: 048
     Dates: start: 20170804

REACTIONS (8)
  - Nausea [Recovering/Resolving]
  - Fatigue [Recovering/Resolving]
  - Ocular vascular disorder [Unknown]
  - Haemoglobin decreased [Unknown]
  - Decreased appetite [Recovering/Resolving]
  - Thrombosis [Unknown]
  - Condition aggravated [Unknown]
  - Visual impairment [Unknown]

NARRATIVE: CASE EVENT DATE: 2017
